FAERS Safety Report 7940374-8 (Version None)
Quarter: 2011Q4

REPORT INFORMATION
  Report Type: 
  Country: None (occurrence: None)
  Receive Date: 20111127
  Receipt Date: 20101104
  Transmission Date: 20120403
  Serious: No
  Sender: FDA-Public Use
  Company Number: US-ALLERGAN-1014243US

PATIENT
  Age: 54 Year
  Sex: Female

DRUGS (2)
  1. SOOTHE [Concomitant]
     Indication: PRODUCT USED FOR UNKNOWN INDICATION
  2. ELESTAT [Suspect]
     Indication: LACRIMATION INCREASED

REACTIONS (1)
  - DRUG INEFFECTIVE [None]
